FAERS Safety Report 5786215-9 (Version None)
Quarter: 2008Q2

REPORT INFORMATION
  Report Type: 
  Country: None (occurrence: None)
  Receive Date: 20080624
  Receipt Date: 20070713
  Transmission Date: 20081010
  Serious: No
  Sender: FDA-Public Use
  Company Number: US-ASTRAZENECA-2007UW16345

PATIENT
  Age: 75 Year
  Sex: Female
  Weight: 118.2 kg

DRUGS (2)
  1. PULMICORT-100 [Suspect]
     Indication: CHRONIC OBSTRUCTIVE PULMONARY DISEASE
     Dosage: 1 AMP BID
     Route: 055
     Dates: start: 20070101
  2. DUONEB [Suspect]
     Indication: CHRONIC OBSTRUCTIVE PULMONARY DISEASE
     Dosage: 1 AMPULE TID
     Route: 055
     Dates: start: 20060101

REACTIONS (1)
  - PARAESTHESIA ORAL [None]
